FAERS Safety Report 24132138 (Version 1)
Quarter: 2024Q3

REPORT INFORMATION
  Report Type: Spontaneous
  Country: CH (occurrence: CH)
  Receive Date: 20240724
  Receipt Date: 20240724
  Transmission Date: 20241016
  Serious: Yes (Other)
  Sender: MYLAN
  Company Number: None

PATIENT
  Sex: Female
  Weight: 2.22 kg

DRUGS (4)
  1. ALPRAZOLAM [Suspect]
     Active Substance: ALPRAZOLAM
     Indication: Product used for unknown indication
     Dosage: 0.5 MILLIGRAM, QD (STOPPED IN THE FIRST TRIMESTER (WHEN THE PREGNANCY WAS ANNOUNCED)
     Route: 064
     Dates: end: 2023
  2. FLUOXETINE [Suspect]
     Active Substance: FLUOXETINE HYDROCHLORIDE
     Indication: Product used for unknown indication
     Dosage: 20 MILLIGRAM, QD (STOPPED IN THE FIRST TRIMESTER (WHEN THE PREGNANCY WAS ANNOUNCED)
     Route: 064
     Dates: end: 2023
  3. FLUOXETINE [Suspect]
     Active Substance: FLUOXETINE HYDROCHLORIDE
     Dosage: 20 MILLIGRAM, QD
     Route: 064
     Dates: start: 202310
  4. ZOLPIDEM [Suspect]
     Active Substance: ZOLPIDEM TARTRATE
     Indication: Product used for unknown indication
     Dosage: 10 MILLIGRAM, QD (STOPPED IN THE FIRST TRIMESTER (WHEN THE PREGNANCY WAS ANNOUNCED)
     Route: 064
     Dates: end: 2023

REACTIONS (3)
  - Premature baby [Recovered/Resolved]
  - Low birth weight baby [Recovering/Resolving]
  - Foetal exposure during pregnancy [Recovered/Resolved]

NARRATIVE: CASE EVENT DATE: 20231001
